FAERS Safety Report 20116323 (Version 4)
Quarter: 2022Q2

REPORT INFORMATION
  Report Type: Spontaneous
  Country: DE (occurrence: None)
  Receive Date: 20211126
  Receipt Date: 20220418
  Transmission Date: 20220721
  Serious: Yes (Hospitalization)
  Sender: FDA-Public Use
  Company Number: DE-ROCHE-2960566

PATIENT
  Age: 6 Year
  Sex: Female
  Weight: 22.9 kg

DRUGS (7)
  1. EVRYSDI [Suspect]
     Active Substance: RISDIPLAM
     Indication: Spinal muscular atrophy
     Dosage: IN THE EVENINGS
     Route: 048
     Dates: start: 20211008
  2. EVRYSDI [Suspect]
     Active Substance: RISDIPLAM
     Dosage: DOSE RECEIVED FIVE HOURS LATER THAN REGULARY
     Route: 048
     Dates: start: 20211113
  3. EVRYSDI [Suspect]
     Active Substance: RISDIPLAM
     Dosage: DOSE RECEIVED THREE HOURS LATER THAN REGULARY
     Route: 048
     Dates: start: 20211114
  4. EVRYSDI [Suspect]
     Active Substance: RISDIPLAM
     Dosage: DOSE RECEIVED AT THE NORMAL TIME
     Route: 048
     Dates: start: 20211115
  5. MORPHINE [Suspect]
     Active Substance: MORPHINE
     Indication: Product used for unknown indication
     Route: 065
  6. COVID-19 VACCINE NOS [Suspect]
     Active Substance: COVID-19 VACCINE NOS
     Indication: Product used for unknown indication
     Dosage: FIRST DOSE
     Route: 065
     Dates: start: 20220205, end: 20220205
  7. ALBUTEROL [Concomitant]
     Active Substance: ALBUTEROL
     Indication: Obstruction

REACTIONS (4)
  - Vomiting [Not Recovered/Not Resolved]
  - Malaise [Unknown]
  - Spinal operation [Recovered/Resolved]
  - Dizziness [Recovered/Resolved]

NARRATIVE: CASE EVENT DATE: 20211112
